FAERS Safety Report 16419501 (Version 2)
Quarter: 2019Q3

REPORT INFORMATION
  Report Type: Spontaneous
  Country: DE (occurrence: DE)
  Receive Date: 20190612
  Receipt Date: 20190806
  Transmission Date: 20191004
  Serious: Yes (Life-Threatening, Other)
  Sender: FDA-Public Use
  Company Number: DE-AUROBINDO-AUR-APL-2019-033873

PATIENT

DRUGS (4)
  1. PANTOPRAZOL [Concomitant]
     Active Substance: PANTOPRAZOLE SODIUM
     Indication: PROPHYLAXIS AGAINST GASTROINTESTINAL ULCER
     Dosage: 40 MILLIGRAM
     Route: 042
  2. LEVETIRACETAM. [Concomitant]
     Active Substance: LEVETIRACETAM
     Indication: GENERALISED TONIC-CLONIC SEIZURE
     Dosage: 1500 MILLIGRAM, ONCE A DAY, 1500 MG MILLGRAM(S) EVERY DAYS 2 SEPARATED DOSES
     Route: 065
     Dates: start: 20190425
  3. LINEZOLID SOLUTION FOR INFUSION [Suspect]
     Active Substance: LINEZOLID
     Indication: INFECTION
     Dosage: 600 MILLIGRAM
     Route: 065
     Dates: start: 20190509, end: 20190516
  4. LINEZOLID SOLUTION FOR INFUSION [Suspect]
     Active Substance: LINEZOLID
     Dosage: 600 MILLIGRAM
     Route: 065
     Dates: start: 20190519, end: 20190520

REACTIONS (1)
  - Agranulocytosis [Not Recovered/Not Resolved]

NARRATIVE: CASE EVENT DATE: 20190520
